FAERS Safety Report 12551226 (Version 3)
Quarter: 2016Q3

REPORT INFORMATION
  Report Type: Spontaneous
  Country: US (occurrence: US)
  Receive Date: 20160713
  Receipt Date: 20160729
  Transmission Date: 20161109
  Serious: Yes (Hospitalization)
  Sender: FDA-Public Use
  Company Number: US-CIPLA LTD.-2016US09478

PATIENT

DRUGS (6)
  1. IRINOTECAN [Suspect]
     Active Substance: IRINOTECAN
     Indication: COLORECTAL CANCER
     Dosage: 180 MG/M2, OVER 90 MIN ON DAY 1
     Route: 042
  2. FLUOROURACIL. [Suspect]
     Active Substance: FLUOROURACIL
     Indication: COLORECTAL CANCER
     Dosage: 2400 MG/M2, CONTINUOUS INFUSION OVER 46 H BEGINNING ON DAY 1; CYCLE REPEATED EVERY 14 DAYS
     Route: 042
  3. AVASTIN [Suspect]
     Active Substance: BEVACIZUMAB
     Indication: COLORECTAL CANCER
     Dosage: 7.5 MG/KG, EVERY 3 WEEKS
     Route: 042
  4. FLUOROURACIL. [Suspect]
     Active Substance: FLUOROURACIL
     Dosage: 400 MG/M2, ON DAY 1; CYCLE REPEATED EVERY 14 DAYS
     Route: 042
  5. ATIVAN [Suspect]
     Active Substance: LORAZEPAM
     Indication: ANTIEMETIC SUPPORTIVE CARE
     Dosage: UNK
     Route: 065
  6. FOLINIC ACID [Suspect]
     Active Substance: LEUCOVORIN
     Indication: COLORECTAL CANCER
     Dosage: 400 MG/M2, OVER 2 H ON DAY 1
     Route: 042

REACTIONS (12)
  - Diarrhoea [Unknown]
  - Azotaemia [Unknown]
  - Hypernatraemia [Unknown]
  - Vomiting [Recovered/Resolved]
  - Retching [Unknown]
  - Blood alkaline phosphatase increased [Unknown]
  - Hyperammonaemic encephalopathy [Recovered/Resolved]
  - Metabolic acidosis [Recovered/Resolved]
  - Alanine aminotransferase increased [Unknown]
  - Nausea [Recovered/Resolved]
  - Somnolence [Unknown]
  - Blood uric acid increased [Unknown]

NARRATIVE: CASE EVENT DATE: 20150511
